FAERS Safety Report 8233088-0 (Version None)
Quarter: 2012Q1

REPORT INFORMATION
  Report Type: 
  Country: None (occurrence: None)
  Receive Date: 20120326
  Receipt Date: 20120320
  Transmission Date: 20120608
  Serious: No
  Sender: FDA-Public Use
  Company Number: US-BIOGENIDEC-2012BI009945

PATIENT
  Age: 47 Year
  Sex: Female

DRUGS (2)
  1. AMPYRA [Concomitant]
     Indication: GAIT DISTURBANCE
     Dates: start: 20100601
  2. TYSABRI [Suspect]
     Indication: MULTIPLE SCLEROSIS
     Route: 042
     Dates: start: 20110622

REACTIONS (1)
  - ASTHENIA [None]
